FAERS Safety Report 5529886-4 (Version None)
Quarter: 2007Q4

REPORT INFORMATION
  Report Type: 
  Country: None (occurrence: None)
  Receive Date: 20071129
  Receipt Date: 20070821
  Transmission Date: 20080405
  Serious: No
  Sender: FDA-Public Use
  Company Number: US-ABBOTT-07P-163-0378539-00

PATIENT
  Age: 20 Year
  Sex: Female
  Weight: 123 kg

DRUGS (1)
  1. MERIDIA [Suspect]
     Indication: OBESITY
     Route: 048
     Dates: start: 20070620, end: 20070623

REACTIONS (3)
  - DEPRESSION [None]
  - HEADACHE [None]
  - INCREASED APPETITE [None]
